FAERS Safety Report 14897571 (Version 1)
Quarter: 2018Q2

REPORT INFORMATION
  Report Type: Spontaneous
  Country: FR (occurrence: FR)
  Receive Date: 20180515
  Receipt Date: 20180515
  Transmission Date: 20180711
  Serious: Yes (Death, Hospitalization)
  Sender: FDA-Public Use
  Company Number: FR-JNJFOC-20180517689

PATIENT
  Age: 70 Year
  Sex: Male
  Weight: 82 kg

DRUGS (1)
  1. XARELTO [Suspect]
     Active Substance: RIVAROXABAN
     Indication: ATRIAL FIBRILLATION
     Route: 048

REACTIONS (4)
  - Pulmonary haemorrhage [Fatal]
  - Perirenal haematoma [Fatal]
  - Spinal cord haematoma [Fatal]
  - Paresis [Fatal]

NARRATIVE: CASE EVENT DATE: 2017
